FAERS Safety Report 10374145 (Version 5)
Quarter: 2014Q3

REPORT INFORMATION
  Report Type: Spontaneous
  Country: US (occurrence: US)
  Receive Date: 20140811
  Receipt Date: 20140930
  Transmission Date: 20150326
  Serious: Yes (Other)
  Sender: FDA-Public Use
  Company Number: US-ROCHE-1446925

PATIENT
  Sex: Male

DRUGS (1)
  1. AVASTIN [Suspect]
     Active Substance: BEVACIZUMAB
     Indication: RETINAL VEIN OCCLUSION
     Dosage: LEFT EYE
     Route: 065
     Dates: start: 20120416

REACTIONS (5)
  - Suspected transmission of an infectious agent via product [Unknown]
  - Product contamination [Unknown]
  - Off label use [Unknown]
  - Infection [Unknown]
  - Blindness [Not Recovered/Not Resolved]
